FAERS Safety Report 10405258 (Version 2)
Quarter: 2014Q3

REPORT INFORMATION
  Report Type: Report from Study
  Country: US (occurrence: US)
  Receive Date: 20140825
  Receipt Date: 20140825
  Transmission Date: 20150326
  Serious: Yes (Other)
  Sender: FDA-Public Use
  Company Number: PHHO2007US07213

PATIENT
  Age: 81 Year
  Sex: Female
  Weight: 59.4 kg

DRUGS (4)
  1. ZOLEDRONATE [Suspect]
     Active Substance: ZOLEDRONIC ACID
     Indication: METASTASES TO BONE
     Dosage: ZOLENDRONIC ACID MONTHLY
     Route: 042
     Dates: start: 20061026, end: 20070322
  2. VITAMIN D [Concomitant]
     Active Substance: CHOLECALCIFEROL
  3. XELODA [Concomitant]
     Active Substance: CAPECITABINE
  4. CALCIUM [Concomitant]
     Active Substance: CALCIUM

REACTIONS (5)
  - Osteonecrosis of jaw [Not Recovered/Not Resolved]
  - Bone lesion [Not Recovered/Not Resolved]
  - Bone disorder [Not Recovered/Not Resolved]
  - Gingivitis [Not Recovered/Not Resolved]
  - Mucosal ulceration [Not Recovered/Not Resolved]

NARRATIVE: CASE EVENT DATE: 20070410
